FAERS Safety Report 7130244-X (Version None)
Quarter: 2010Q4

REPORT INFORMATION
  Report Type: 
  Country: None (occurrence: None)
  Receive Date: 20101116
  Receipt Date: 20101108
  Transmission Date: 20110411
  Serious: Yes (Disabling)
  Sender: FDA-Public Use
  Company Number: OSCN-NO-1005S-0132

PATIENT
  Age: 40 Year
  Sex: Female

DRUGS (33)
  1. OMNISCAN [Suspect]
     Indication: TRANSPLANT EVALUATION
     Dosage: SINGLE DOSE, I.V.
     Route: 042
     Dates: start: 20060313, end: 20060313
  2. MAGNEVIST [Suspect]
     Indication: PRODUCT USED FOR UNKNOWN INDICATION
     Dosage: SINGLE DOSE, I.V.
     Route: 042
     Dates: start: 20071001, end: 20071001
  3. GADOVIST [Suspect]
     Indication: PRODUCT USED FOR UNKNOWN INDICATION
     Dosage: SINGLE DOSE, I.V.
     Route: 042
     Dates: start: 20090901, end: 20090901
  4. LANTHANUM CARBONATE (FOSRENOL) [Concomitant]
  5. RENAGEL [Concomitant]
  6. SACCHARATED IRON OXIDE (VENOFER) [Concomitant]
  7. PARICALCITOL (ZEMPLAR) [Concomitant]
  8. ARANESP [Concomitant]
  9. METOPROLOL (SELO-ZOK) [Concomitant]
  10. WARFARIN (MAREVAN) [Concomitant]
  11. ATORVASTATIN [Concomitant]
  12. RAMIPRIL [Concomitant]
  13. PLAVIX [Concomitant]
  14. STOLPIDEM (STILNOCT) [Concomitant]
  15. CINACALCET (MIMPARA) [Concomitant]
  16. CIPROFLOXACIN [Concomitant]
  17. VANCOMYCIN (VANCOMYCIN ^HOSPIRA^) [Concomitant]
  18. FOLIC ACID [Concomitant]
  19. VANCOMYCIN (VANCOMYCIN ^ALPHARMA^) [Concomitant]
  20. TRANDATE [Concomitant]
  21. INNOHEP [Concomitant]
  22. GLYCERYL TRINITRATE (NITROLINGUAL) [Concomitant]
  23. PARACETAMOL (PINEX) [Concomitant]
  24. CODEINE [Concomitant]
  25. METOCLOPRAMIDE (PRIMPERAN) [Concomitant]
  26. KETOBEMIDONE (KETOGAN) [Concomitant]
  27. CODEINE, COMBINATIONS EXCL. PSYCHOLEPTIS (FORTAMOL) [Concomitant]
  28. METOCLOPRAMIDE (EMPERAL) [Concomitant]
  29. MELATONIN (CIRCADIN) [Concomitant]
  30. TRAMADOL (TRADOLAN) [Concomitant]
  31. ATORVASTATIN [Concomitant]
  32. VITAMIN B COMPLEX, PLAIN (B-COMBIN STARK) [Concomitant]
  33. VITAMIN C (NYCOPLUS C) [Concomitant]

REACTIONS (1)
  - NEPHROGENIC SYSTEMIC FIBROSIS [None]
